FAERS Safety Report 7819498-1 (Version None)
Quarter: 2011Q4

REPORT INFORMATION
  Report Type: 
  Country: None (occurrence: None)
  Receive Date: 20111018
  Receipt Date: 20110126
  Transmission Date: 20120403
  Serious: No
  Sender: FDA-Public Use
  Company Number: US-ASTRAZENECA-2011SE04468

PATIENT
  Age: 86 Year
  Sex: Male

DRUGS (2)
  1. SYMBICORT [Suspect]
     Indication: CHRONIC OBSTRUCTIVE PULMONARY DISEASE
     Dosage: 160/4.5 AS TWO PUFFS TWICE DAY
     Route: 055
  2. THREE DIFFERENT KINDS FOR BLOOD PRESSURE NAMES NOT GIVEN [Concomitant]

REACTIONS (4)
  - DRUG INEFFECTIVE [None]
  - OROPHARYNGEAL BLISTERING [None]
  - ORAL CANDIDIASIS [None]
  - BLOOD PRESSURE INCREASED [None]
